FAERS Safety Report 8792406 (Version 2)
Quarter: 2012Q4

REPORT INFORMATION
  Report Type: 
  Country: US (occurrence: US)
  Receive Date: 20120918
  Receipt Date: 20121002
  Transmission Date: 20130627
  Serious: Yes (Other)
  Sender: FDA-Public Use
  Company Number: US-PFIZER INC-2012227947

PATIENT
  Age: 50 Year
  Sex: Female

DRUGS (1)
  1. NEURONTIN [Suspect]
     Dosage: UNK

REACTIONS (9)
  - Drug hypersensitivity [Unknown]
  - Respiratory distress [Unknown]
  - Confusional state [Unknown]
  - Dyspnoea [Unknown]
  - Wheezing [Unknown]
  - Swollen tongue [Unknown]
  - Speech disorder [Unknown]
  - Dysphagia [Unknown]
  - Dizziness [Unknown]
